FAERS Safety Report 8923342 (Version 2)
Quarter: 2012Q4

REPORT INFORMATION
  Report Type: 
  Country: TR (occurrence: TR)
  Receive Date: 20121123
  Receipt Date: 20121128
  Transmission Date: 20130627
  Serious: Yes (Hospitalization)
  Sender: FDA-Public Use
  Company Number: TR-NOVOPROD-364377

PATIENT
  Age: 8 Week
  Sex: Male
  Weight: 2.6 kg

DRUGS (3)
  1. NOVORAPID FLEXPEN [Suspect]
     Indication: TYPE 2 DIABETES MELLITUS
     Dosage: 12 U, qd
     Route: 064
     Dates: start: 20120214
  2. NOVORAPID FLEXPEN [Suspect]
     Dosage: 30 U, qd
     Route: 063
  3. INSULATARD NPH HUMAN [Suspect]
     Indication: TYPE 2 DIABETES MELLITUS
     Route: 064
     Dates: start: 20120214, end: 20120902

REACTIONS (6)
  - Premature baby [Recovered/Resolved]
  - Foetal exposure during pregnancy [Recovered/Resolved]
  - Maternal drugs affecting foetus [None]
  - Caesarean section [None]
  - Incubator therapy [None]
  - Exposure during breast feeding [None]
